FAERS Safety Report 23972982 (Version 1)
Quarter: 2024Q2

REPORT INFORMATION
  Report Type: Spontaneous
  Country: DE (occurrence: DE)
  Receive Date: 20240613
  Receipt Date: 20240613
  Transmission Date: 20240715
  Serious: Yes (Other)
  Sender: FDA-Public Use
  Company Number: DE-BRISTOL-MYERS SQUIBB COMPANY-2024-092977

PATIENT
  Age: 57 Year
  Sex: Male

DRUGS (3)
  1. YERVOY [Suspect]
     Active Substance: IPILIMUMAB
     Indication: Metastatic malignant melanoma
     Dates: start: 202204, end: 202206
  2. OPDIVO [Suspect]
     Active Substance: NIVOLUMAB
     Indication: Metastatic malignant melanoma
     Dates: start: 202204, end: 202206
  3. OPDIVO [Suspect]
     Active Substance: NIVOLUMAB
     Dates: end: 20240321

REACTIONS (4)
  - Urinary tract disorder [Unknown]
  - Metastatic malignant melanoma [Unknown]
  - Vitiligo [Unknown]
  - Proctitis haemorrhagic [Unknown]

NARRATIVE: CASE EVENT DATE: 20220701
